FAERS Safety Report 6415340-4 (Version None)
Quarter: 2009Q4

REPORT INFORMATION
  Report Type: 
  Country: None (occurrence: None)
  Receive Date: 20091027
  Receipt Date: 20091021
  Transmission Date: 20100525
  Serious: Yes (Other)
  Sender: FDA-Public Use
  Company Number: PHHY2009BR37642

PATIENT
  Age: 23 Year
  Sex: Female

DRUGS (1)
  1. METHERGINE [Suspect]

REACTIONS (3)
  - DRUG EXPOSURE DURING PREGNANCY [None]
  - INDUCED ABORTION FAILED [None]
  - POISONING DELIBERATE [None]
